FAERS Safety Report 16045270 (Version 9)
Quarter: 2019Q3

REPORT INFORMATION
  Report Type: Report from Study
  Country: US (occurrence: US)
  Receive Date: 20190307
  Receipt Date: 20190703
  Transmission Date: 20191004
  Serious: Yes (Hospitalization)
  Sender: FDA-Public Use
  Company Number: US-SA-2018SA272546

PATIENT
  Age: 51 Year
  Sex: Male
  Weight: 99 kg

DRUGS (2)
  1. ALGLUCOSIDASE ALFA [Suspect]
     Active Substance: ALGLUCOSIDASE ALFA
     Dosage: 2350,Q2
     Route: 041
     Dates: start: 20180326
  2. ALGLUCOSIDASE ALFA [Suspect]
     Active Substance: ALGLUCOSIDASE ALFA
     Indication: GLYCOGEN STORAGE DISEASE TYPE II
     Dosage: 2350.00; FREQUENCY: Q2
     Route: 041
     Dates: start: 20150210

REACTIONS (13)
  - Oedema [Unknown]
  - Blister [Unknown]
  - Pain [Unknown]
  - Chest pain [Not Recovered/Not Resolved]
  - Blood pressure increased [Not Recovered/Not Resolved]
  - Limb injury [Unknown]
  - Asthenia [Unknown]
  - Scab [Unknown]
  - Memory impairment [Unknown]
  - Heart rate increased [Not Recovered/Not Resolved]
  - Musculoskeletal chest pain [Unknown]
  - Chest discomfort [Unknown]
  - Vocal cord disorder [Unknown]

NARRATIVE: CASE EVENT DATE: 2019
